FAERS Safety Report 5398258-8 (Version None)
Quarter: 2007Q3

REPORT INFORMATION
  Report Type: 
  Country: None (occurrence: None)
  Receive Date: 20070726
  Receipt Date: 20070720
  Transmission Date: 20080115
  Serious: Yes (Other)
  Sender: FDA-Public Use
  Company Number: US-PFIZER INC-2007060617

PATIENT
  Sex: Male
  Weight: 90.909 kg

DRUGS (2)
  1. CAVERJECT POWDER, STERILE [Suspect]
     Indication: ERECTILE DYSFUNCTION
     Route: 065
  2. TAXOTERE [Suspect]
     Indication: LUNG NEOPLASM MALIGNANT
     Dates: start: 20061101, end: 20070305

REACTIONS (4)
  - DRUG INEFFECTIVE [None]
  - ERECTILE DYSFUNCTION [None]
  - FATIGUE [None]
  - LUNG NEOPLASM MALIGNANT [None]
